FAERS Safety Report 25819459 (Version 1)
Quarter: 2025Q3

REPORT INFORMATION
  Report Type: Spontaneous
  Country: US (occurrence: US)
  Receive Date: 20250918
  Receipt Date: 20250918
  Transmission Date: 20251021
  Serious: No
  Sender: SANOFI AVENTIS
  Company Number: US-SA-2025SA278678

PATIENT
  Age: 63 Year
  Sex: Female

DRUGS (12)
  1. REZUROCK [Suspect]
     Active Substance: BELUMOSUDIL
     Indication: Chronic graft versus host disease
     Dosage: 200 MG, QD
     Route: 048
  2. ALBUTEROL SULFATE [Concomitant]
     Active Substance: ALBUTEROL SULFATE
  3. BACTRIM DS [Concomitant]
     Active Substance: SULFAMETHOXAZOLE\TRIMETHOPRIM
  4. CALQUENCE [Concomitant]
     Active Substance: ACALABRUTINIB
  5. VITAMINS NOS [Concomitant]
     Active Substance: VITAMINS
  6. LISINOPRIL [Concomitant]
     Active Substance: LISINOPRIL
  7. PAROXETINE EXTENDED RELEASE [Concomitant]
  8. PREDNISONE [Concomitant]
     Active Substance: PREDNISONE
  9. RAMELTEON [Concomitant]
     Active Substance: RAMELTEON
  10. SIROLIMUS [Concomitant]
     Active Substance: SIROLIMUS
  11. SYSTANE NIGHTTIME [Concomitant]
     Active Substance: MINERAL OIL\PETROLATUM
     Route: 047
  12. TRIAMCINOLONE [Concomitant]
     Active Substance: TRIAMCINOLONE

REACTIONS (1)
  - COVID-19 [Unknown]
